FAERS Safety Report 11746455 (Version 1)
Quarter: 2015Q4

REPORT INFORMATION
  Report Type: Spontaneous
  Country: US (occurrence: None)
  Receive Date: 20151116
  Receipt Date: 20151116
  Transmission Date: 20160304
  Serious: No
  Sender: FDA-Public Use
  Company Number: None

PATIENT
  Age: 53 Year
  Sex: Male

DRUGS (2)
  1. HARVONI [Suspect]
     Active Substance: LEDIPASVIR\SOFOSBUVIR
     Indication: ACUTE HEPATITIS C
     Route: 048
  2. NAPROXEN. [Concomitant]
     Active Substance: NAPROXEN

REACTIONS (1)
  - Headache [None]
